FAERS Safety Report 7562441-3 (Version None)
Quarter: 2011Q2

REPORT INFORMATION
  Report Type: 
  Country: None (occurrence: None)
  Receive Date: 20110614
  Receipt Date: 20110607
  Transmission Date: 20111010
  Serious: Yes (Other)
  Sender: FDA-Public Use
  Company Number: TRP_07674_2011

PATIENT
  Age: 25 Year
  Sex: Female

DRUGS (4)
  1. ZYRTEC [Concomitant]
  2. PEGASYS [Suspect]
     Indication: PRODUCT USED FOR UNKNOWN INDICATION
     Dosage: (80 ?G 1X/WEEK INTRAMUSCULAR)
     Route: 030
     Dates: start: 20090612, end: 20100507
  3. PRILOSEC [Concomitant]
  4. RIBAVIRIN [Suspect]
     Indication: PRODUCT USED FOR UNKNOWN INDICATION
     Dosage: (DF)
     Dates: start: 20090612, end: 20100514

REACTIONS (5)
  - VARICOSE VEIN [None]
  - UMBILICAL CORD ABNORMALITY [None]
  - DRUG EXPOSURE DURING PREGNANCY [None]
  - CAESAREAN SECTION [None]
  - PREMATURE BABY [None]
